FAERS Safety Report 9657779 (Version 3)
Quarter: 2013Q4

REPORT INFORMATION
  Report Type: Spontaneous
  Country: PL (occurrence: PL)
  Receive Date: 20131030
  Receipt Date: 20131212
  Transmission Date: 20140711
  Serious: Yes (Death, Other)
  Sender: FDA-Public Use
  Company Number: PL-CELGENEUS-129-21880-13101613

PATIENT
  Sex: Female

DRUGS (1)
  1. REVLIMID [Suspect]
     Indication: HODGKIN^S DISEASE
     Route: 048
     Dates: start: 20130923

REACTIONS (3)
  - Death [Fatal]
  - Jaundice [Unknown]
  - Cholestasis [Unknown]
